FAERS Safety Report 6125877-3 (Version None)
Quarter: 2009Q1

REPORT INFORMATION
  Report Type: 
  Country: None (occurrence: None)
  Receive Date: 20090320
  Receipt Date: 20090310
  Transmission Date: 20090719
  Serious: Yes (Other)
  Sender: FDA-Public Use
  Company Number: US-BAXTER-2009BH004000

PATIENT
  Age: 31 Year
  Sex: Male

DRUGS (8)
  1. IFOSFAMIDE GENERIC [Suspect]
     Indication: TESTIS CANCER
     Route: 065
  2. BLEOMYCIN SULFATE GENERIC [Suspect]
     Indication: TESTIS CANCER
     Route: 065
  3. ETOPOSIDE [Suspect]
     Indication: TESTIS CANCER
     Route: 065
  4. ETOPOSIDE [Suspect]
     Route: 048
  5. CISPLATIN [Suspect]
     Indication: TESTIS CANCER
     Route: 065
  6. VINBLASTINE [Suspect]
     Indication: TESTIS CANCER
     Route: 065
  7. CARBOPLATIN [Suspect]
     Indication: TESTIS CANCER
     Route: 065
  8. RADIOTHERAPY [Suspect]
     Indication: TESTIS CANCER

REACTIONS (1)
  - LEUKOENCEPHALOPATHY [None]
